FAERS Safety Report 8444135-5 (Version None)
Quarter: 2012Q2

REPORT INFORMATION
  Report Type: 
  Country: None (occurrence: None)
  Receive Date: 20120323
  Receipt Date: 20110524
  Transmission Date: 20120825
  Serious: Yes (Hospitalization)
  Sender: FDA-Public Use
  Company Number: 163-21880-11053362

PATIENT
  Age: 46 Year
  Sex: Female

DRUGS (4)
  1. REVLIMID [Suspect]
     Indication: MULTIPLE MYELOMA
     Dosage: 15 MG, 1 IN 1 D, PO
     Route: 048
     Dates: start: 20110101, end: 20110401
  2. VELCADE [Concomitant]
  3. CYTOXAN [Concomitant]
  4. DEXAMETHASONE (DEXAMETHASONE) (0.5 MILLIGRAM, TABLETS) [Concomitant]

REACTIONS (2)
  - FEMUR FRACTURE [None]
  - PLEURAL EFFUSION [None]
